FAERS Safety Report 18062716 (Version 2)
Quarter: 2020Q3

REPORT INFORMATION
  Report Type: Report from Study
  Country: GB (occurrence: GB)
  Receive Date: 20200724
  Receipt Date: 20200811
  Transmission Date: 20201103
  Serious: Yes (Other)
  Sender: FDA-Public Use
  Company Number: GB-ORION CORPORATION ORION PHARMA-20_00009018

PATIENT
  Age: 71 Year
  Sex: Male

DRUGS (6)
  1. DUODOPA [Suspect]
     Active Substance: CARBIDOPA\LEVODOPA
     Dosage: 100ML CASSETTE
     Route: 050
  2. DUODOPA [Suspect]
     Active Substance: CARBIDOPA\LEVODOPA
     Dosage: 5MG/1ML 20MG/1ML
     Route: 050
     Dates: start: 2020
  3. DUODOPA [Suspect]
     Active Substance: CARBIDOPA\LEVODOPA
     Dosage: CONTINUOUS RATE 3.5 ML/HR
     Route: 050
     Dates: start: 2020, end: 2020
  4. DUODOPA [Suspect]
     Active Substance: CARBIDOPA\LEVODOPA
     Indication: PARKINSON^S DISEASE
     Dosage: DOSE DECREASED, CONTINUOUS RATE 3.2 ML/HR, EXTRA DOSE 1.8 ML/HR
     Route: 050
     Dates: end: 2020
  5. STALEVO [Suspect]
     Active Substance: CARBIDOPA\ENTACAPONE\LEVODOPA
     Indication: PRODUCT USED FOR UNKNOWN INDICATION
     Dosage: NIGHT
     Route: 065
  6. DUODOPA [Suspect]
     Active Substance: CARBIDOPA\LEVODOPA
     Dosage: CONTINUOUS RATE 3.3 ML/HR, EXTRA DOSE 2.0 ML/HR
     Route: 050
     Dates: start: 2020, end: 2020

REACTIONS (15)
  - Pain in extremity [Not Recovered/Not Resolved]
  - Hypersomnia [Unknown]
  - Gait inability [Unknown]
  - Dyskinesia [Unknown]
  - Abnormal dreams [Unknown]
  - Hallucination [Recovered/Resolved]
  - Adverse drug reaction [Recovered/Resolved]
  - Freezing phenomenon [Not Recovered/Not Resolved]
  - Muscle rigidity [Not Recovered/Not Resolved]
  - Discomfort [Recovered/Resolved]
  - Drug ineffective [Unknown]
  - Tremor [Not Recovered/Not Resolved]
  - Arthralgia [Unknown]
  - Surgery [Unknown]
  - Bradykinesia [Unknown]
